FAERS Safety Report 7560061-8 (Version None)
Quarter: 2011Q2

REPORT INFORMATION
  Report Type: 
  Country: None (occurrence: None)
  Receive Date: 20110621
  Receipt Date: 20110615
  Transmission Date: 20111010
  Serious: Yes (Other)
  Sender: FDA-Public Use
  Company Number: PHEH2010US02062

PATIENT
  Sex: Female
  Weight: 123 kg

DRUGS (18)
  1. OMEPRAZOLE [Concomitant]
     Dosage: 20 MG, UD
     Route: 048
  2. FUROSEMIDE [Concomitant]
     Dosage: 20 MG, UD
     Route: 048
  3. AMLODIPINE [Concomitant]
  4. CALCIUM CARBONATE W/VITAMIN D NOS [Concomitant]
     Dosage: 1 TABLET UD
     Route: 048
  5. AMLODIPINE BESYLATE [Concomitant]
     Dosage: 10 MG, UD
     Route: 048
  6. ZETIA [Concomitant]
     Dosage: 10 MG, UD
     Route: 048
  7. CELEBREX [Concomitant]
     Dosage: 200 MG UD
     Route: 048
  8. CLONIDINE [Concomitant]
     Dosage: 0.1 MG, DAILY
     Route: 048
  9. POTASSIUM CHLORIDE [Concomitant]
     Dosage: 10 MEQ PRN
  10. BONIVA [Concomitant]
     Dosage: 150 MG, QMN
     Route: 048
  11. FISH OIL [Concomitant]
     Dosage: 1200 MG, UD
     Route: 048
  12. LOVAZA [Concomitant]
     Dosage: 1200 MG, UD
     Route: 048
  13. DIOVAN [Concomitant]
  14. KLOR-CON [Concomitant]
     Dosage: 20 MEQ, UD
     Route: 048
  15. CENTRUM SILVER [Concomitant]
     Dosage: 1 TABLET PRN
     Route: 048
  16. GLEEVEC [Suspect]
     Indication: CHRONIC MYELOID LEUKAEMIA
     Dosage: 300 MG, BID
     Route: 048
     Dates: start: 20090611
  17. VITAMIN B-12 [Concomitant]
     Dosage: MCG, UD
     Route: 048
  18. NAPROXEN [Concomitant]
     Dosage: 250 MG, DAILY
     Route: 048

REACTIONS (12)
  - NEOPLASM MALIGNANT [None]
  - MYALGIA [None]
  - NAUSEA [None]
  - WEIGHT DECREASED [None]
  - JOINT SWELLING [None]
  - ANAEMIA [None]
  - CONSTIPATION [None]
  - OEDEMA PERIPHERAL [None]
  - WEIGHT INCREASED [None]
  - PAIN IN EXTREMITY [None]
  - COLON CANCER [None]
  - ARTHRALGIA [None]
